FAERS Safety Report 6314070-7 (Version None)
Quarter: 2009Q3

REPORT INFORMATION
  Report Type: 
  Country: None (occurrence: None)
  Receive Date: 20090814
  Receipt Date: 20090729
  Transmission Date: 20100115
  Serious: Yes (Other)
  Sender: FDA-Public Use
  Company Number: 1000007982

PATIENT
  Age: 58 Year
  Sex: Male

DRUGS (4)
  1. MEMANTINE HCL [Suspect]
     Indication: COGNITIVE DISORDER
     Dosage: 5 MG,ORAL
     Route: 048
  2. AMANTADINE HCL [Suspect]
     Indication: FRONTOTEMPORAL DEMENTIA
     Dosage: 200 MG (100 MG,2 IN 1 D),ORAL
     Route: 048
  3. DONEPEZIL HCL [Concomitant]
  4. OLANZAPINE [Concomitant]

REACTIONS (11)
  - AGITATION [None]
  - DELUSION OF GRANDEUR [None]
  - DISINHIBITION [None]
  - DRUG INTERACTION [None]
  - HALLUCINATIONS, MIXED [None]
  - INCOHERENT [None]
  - MENTAL STATUS CHANGES [None]
  - PRESSURE OF SPEECH [None]
  - PSYCHOTIC DISORDER [None]
  - STEREOTYPY [None]
  - TANGENTIALITY [None]
